FAERS Safety Report 21878607 (Version 1)
Quarter: 2023Q1

REPORT INFORMATION
  Report Type: Report from Study
  Country: AR (occurrence: None)
  Receive Date: 20230118
  Receipt Date: 20230118
  Transmission Date: 20230418
  Serious: Yes (Death)
  Sender: FDA-Public Use
  Company Number: 2023A010678

PATIENT
  Age: 17724 Day
  Sex: Female

DRUGS (1)
  1. LYNPARZA [Suspect]
     Active Substance: OLAPARIB
     Indication: Ovarian cancer
     Dosage: TABLETS
     Route: 048
     Dates: start: 20220217

REACTIONS (1)
  - Death [Fatal]

NARRATIVE: CASE EVENT DATE: 20221213
